FAERS Safety Report 7940579-6 (Version None)
Quarter: 2011Q4

REPORT INFORMATION
  Report Type: 
  Country: None (occurrence: None)
  Receive Date: 20111128
  Receipt Date: 20111115
  Transmission Date: 20120403
  Serious: Yes (Hospitalization)
  Sender: FDA-Public Use
  Company Number: US-ELI_LILLY_AND_COMPANY-US201111006840

PATIENT
  Sex: Female

DRUGS (4)
  1. LANTUS [Concomitant]
  2. GLUCAGON [Suspect]
     Dosage: UNK, PRN
  3. GLUCAGON [Suspect]
     Dosage: UNK, PRN
  4. NOVOLOG [Concomitant]

REACTIONS (8)
  - DIABETIC KETOACIDOSIS [None]
  - PNEUMONIA [None]
  - KIDNEY INFECTION [None]
  - INFECTION [None]
  - PULMONARY OEDEMA [None]
  - NEPHROLITHIASIS [None]
  - CYSTITIS [None]
  - BLOOD GLUCOSE INCREASED [None]
